FAERS Safety Report 5527423-1 (Version None)
Quarter: 2007Q4

REPORT INFORMATION
  Report Type: 
  Country: None (occurrence: None)
  Receive Date: 20071123
  Receipt Date: 20071116
  Transmission Date: 20080405
  Serious: Yes (Disabling)
  Sender: FDA-Public Use
  Company Number: 62899

PATIENT
  Sex: Male

DRUGS (1)
  1. MAXIMUM STRENGTH LICE KILLING SHAMPOO AND CONDITIONER [Suspect]
     Indication: LICE INFESTATION
     Dosage: TOPICAL
     Route: 061
     Dates: start: 20070826, end: 20070826

REACTIONS (9)
  - ACCIDENTAL EXPOSURE [None]
  - BLINDNESS TRANSIENT [None]
  - CHEMICAL EYE INJURY [None]
  - CORNEAL ABRASION [None]
  - HEADACHE [None]
  - INCORRECT ROUTE OF DRUG ADMINISTRATION [None]
  - PERIORBITAL OEDEMA [None]
  - PHOTOPHOBIA [None]
  - VISUAL ACUITY REDUCED [None]
